FAERS Safety Report 7877079-8 (Version None)
Quarter: 2011Q4

REPORT INFORMATION
  Report Type: 
  Country: None (occurrence: None)
  Receive Date: 20111031
  Receipt Date: 20111010
  Transmission Date: 20120403
  Serious: No
  Sender: FDA-Public Use
  Company Number: US-ABBOTT-11P-163-0864278-00

PATIENT
  Sex: Female
  Weight: 49.486 kg

DRUGS (3)
  1. CREON [Suspect]
     Indication: PANCREATITIS
     Dosage: 2 PILLS, 3X DAILY, TOTAL 6 PILLS DAILY, 12000U
     Route: 048
     Dates: start: 20111006
  2. PROTONIX [Concomitant]
     Indication: GASTROOESOPHAGEAL REFLUX DISEASE
  3. DEXTROSE [Concomitant]
     Indication: PRODUCT USED FOR UNKNOWN INDICATION

REACTIONS (2)
  - ABDOMINAL PAIN UPPER [None]
  - DIARRHOEA HAEMORRHAGIC [None]
